FAERS Safety Report 19287314 (Version 1)
Quarter: 2021Q2

REPORT INFORMATION
  Report Type: Spontaneous
  Country: US (occurrence: US)
  Receive Date: 20210521
  Receipt Date: 20210521
  Transmission Date: 20210717
  Serious: No
  Sender: FDA-Public Use
  Company Number: US-RADIUS HEALTH INC.-2021US001191

PATIENT
  Age: 83 Year
  Sex: Female
  Weight: 27.35 kg

DRUGS (1)
  1. TYMLOS [Suspect]
     Active Substance: ABALOPARATIDE
     Indication: ILLNESS
     Dosage: 80 MCG, QD
     Route: 058

REACTIONS (4)
  - Pain in extremity [Unknown]
  - Abdominal pain [Unknown]
  - Back pain [Unknown]
  - Abdominal discomfort [Unknown]

NARRATIVE: CASE EVENT DATE: 202103
